FAERS Safety Report 17355709 (Version 1)
Quarter: 2020Q1

REPORT INFORMATION
  Report Type: Spontaneous
  Country: CA (occurrence: CA)
  Receive Date: 20200131
  Receipt Date: 20200131
  Transmission Date: 20200409
  Serious: Yes (Hospitalization, Other)
  Sender: FDA-Public Use
  Company Number: CA-SAMSUNG BIOEPIS-SB-2020-02642

PATIENT
  Age: 74 Year
  Sex: Female
  Weight: 87 kg

DRUGS (1)
  1. INFLIXIMAB [Suspect]
     Active Substance: INFLIXIMAB
     Indication: PSORIATIC ARTHROPATHY
     Route: 042

REACTIONS (7)
  - Pruritus [Recovered/Resolved]
  - Fungal infection [Recovered/Resolved]
  - Off label use [Recovered/Resolved]
  - Hypotension [Recovered/Resolved]
  - Ear infection [Recovered/Resolved]
  - Rheumatoid arthritis [Recovered/Resolved]
  - Product use issue [Recovered/Resolved]
